FAERS Safety Report 4774109-7 (Version None)
Quarter: 2005Q3

REPORT INFORMATION
  Report Type: 
  Country: None (occurrence: None)
  Receive Date: 20050914
  Receipt Date: 20050408
  Transmission Date: 20060218
  Serious: Yes (Hospitalization)
  Sender: FDA-Public Use
  Company Number: 163-20785-05040161

PATIENT
  Age: 74 Year
  Sex: Male

DRUGS (9)
  1. THALOMID [Suspect]
     Indication: MULTIPLE MYELOMA
     Dosage: 150 MG, QHS, ORAL
     Route: 048
     Dates: start: 20040301
  2. METOPROLOL [Concomitant]
  3. FUROSEMIDE [Concomitant]
  4. ACETYLSALICYLIC ACID SRT [Concomitant]
  5. INSULIN [Concomitant]
  6. SIMVASTATIN [Concomitant]
  7. TERAZOSIN HCL [Concomitant]
  8. HYDRALAZINE [Concomitant]
  9. ISORDIL [Concomitant]

REACTIONS (1)
  - RENAL FAILURE ACUTE [None]
